FAERS Safety Report 5963504-6 (Version None)
Quarter: 2008Q4

REPORT INFORMATION
  Report Type: 
  Country: None (occurrence: None)
  Receive Date: 20081124
  Receipt Date: 20080929
  Transmission Date: 20090506
  Serious: No
  Sender: FDA-Public Use
  Company Number: US-BAYER-200813935BCC

PATIENT
  Age: 92 Year
  Sex: Female
  Weight: 75 kg

DRUGS (4)
  1. ALEVE (CAPLET) [Suspect]
     Indication: ARTHRALGIA
     Dosage: TOTAL DAILY DOSE: 880 MG  UNIT DOSE: 220 MG
     Route: 048
     Dates: start: 20080923, end: 20080926
  2. ALEVE (CAPLET) [Suspect]
     Dosage: TOTAL DAILY DOSE: 440 MG  UNIT DOSE: 220 MG
     Route: 048
     Dates: start: 20080920, end: 20080922
  3. DETROL [Concomitant]
  4. COREG [Concomitant]

REACTIONS (4)
  - ARTHRALGIA [None]
  - DYSPHAGIA [None]
  - ERUCTATION [None]
  - FLATULENCE [None]
